FAERS Safety Report 25791471 (Version 1)
Quarter: 2025Q3

REPORT INFORMATION
  Report Type: Spontaneous
  Country: US (occurrence: US)
  Receive Date: 20250911
  Receipt Date: 20250911
  Transmission Date: 20251021
  Serious: Yes (Other)
  Sender: FRESENIUS KABI
  Company Number: US-FreseniusKabi-FK202512384

PATIENT
  Age: 59 Year
  Sex: Male

DRUGS (4)
  1. ARSENIC TRIOXIDE [Suspect]
     Active Substance: ARSENIC TRIOXIDE
     Indication: Acute promyelocytic leukaemia
  2. ARSENIC TRIOXIDE [Suspect]
     Active Substance: ARSENIC TRIOXIDE
     Dosage: CYCLE 2 OF CONSOLIDATION WITH ATRA?50% DOSE REDUCTION OF ATO WAS DONE FROM CYCLE 3 ONWARD
     Route: 042
  3. TRETINOIN [Concomitant]
     Active Substance: TRETINOIN
     Indication: Acute promyelocytic leukaemia
     Dosage: CYCLE 2 ?ATRA 45 MG/M2 /DAY FOR 2 WEEKS EVERY 4 WEEKS
  4. TRETINOIN [Concomitant]
     Active Substance: TRETINOIN

REACTIONS (2)
  - Hallucination, visual [Unknown]
  - Memory impairment [Unknown]
